FAERS Safety Report 9788647 (Version 1)
Quarter: 2013Q4

REPORT INFORMATION
  Report Type: Spontaneous
  Country: US (occurrence: US)
  Receive Date: 20131230
  Receipt Date: 20131230
  Transmission Date: 20140711
  Serious: Yes (Hospitalization)
  Sender: FDA-Public Use
  Company Number: US-JNJFOC-20131213719

PATIENT
  Age: 67 Year
  Sex: Female
  Weight: 50 kg

DRUGS (13)
  1. DOXORUBICIN HYDROCHLORIDE [Suspect]
     Indication: OVARIAN CANCER
     Route: 042
     Dates: start: 20131111
  2. EC145 [Suspect]
     Indication: OVARIAN CANCER
     Dosage: 2.5 MG ON DAYS 1, 3, 5, 15, 17 AND 19
     Route: 042
     Dates: start: 20131111, end: 20131115
  3. PLACEBO [Suspect]
     Indication: OVARIAN CANCER
     Dosage: 2.5 MG ON DAYS 1, 3, 5, 15, 17 AND 19
     Route: 042
     Dates: start: 20131111, end: 20131115
  4. EC20 [Suspect]
     Indication: SINGLE PHOTON EMISSION COMPUTERISED TOMOGRAM
     Route: 042
     Dates: start: 20131105, end: 20131105
  5. FOLIC ACID [Suspect]
     Indication: SINGLE PHOTON EMISSION COMPUTERISED TOMOGRAM
     Route: 042
     Dates: start: 20131105, end: 20131105
  6. IRON [Suspect]
     Indication: ANAEMIA
     Route: 048
     Dates: start: 201306, end: 20131121
  7. OXYCODONE/ACETAMINOPHEN [Suspect]
     Indication: PRODUCT USED FOR UNKNOWN INDICATION
     Dosage: OXYCODONE/ACETAMINOPHEN (5/325)
     Route: 065
     Dates: start: 20131121
  8. BIFIDOBACTERIUM INFANTIS [Concomitant]
     Indication: SUPPLEMENTATION THERAPY
     Route: 048
     Dates: start: 20130328, end: 20131121
  9. B-6 [Concomitant]
     Indication: VITAMIN SUPPLEMENTATION
     Dosage: 556 DAYS
     Route: 048
     Dates: start: 20120514, end: 20131121
  10. DOCUSATE [Concomitant]
     Indication: CONSTIPATION
     Route: 048
     Dates: start: 20120514
  11. LORAZEPAM [Concomitant]
     Indication: NAUSEA
     Route: 048
     Dates: start: 20130722
  12. LORAZEPAM [Concomitant]
     Indication: ANXIETY
     Route: 048
     Dates: start: 20130722
  13. L-GLUTAMINE [Concomitant]
     Indication: SUPPLEMENTATION THERAPY
     Route: 048
     Dates: start: 20130930, end: 20131121

REACTIONS (2)
  - Abdominal pain [Recovered/Resolved]
  - Constipation [Recovered/Resolved]
